FAERS Safety Report 8712772 (Version 3)
Quarter: 2012Q4

REPORT INFORMATION
  Report Type: 
  Country: US (occurrence: US)
  Receive Date: 20120808
  Receipt Date: 20120924
  Transmission Date: 20130627
  Serious: Yes (Other)
  Sender: FDA-Public Use
  Company Number: US-ASTRAZENECA-2012SE54063

PATIENT
  Age: 78 Year
  Sex: Female
  Weight: 78 kg

DRUGS (8)
  1. SYMBICORT PMDI [Suspect]
     Indication: CHRONIC OBSTRUCTIVE PULMONARY DISEASE
     Dosage: 160/4.5, 2 PUFFS TWO TIMES A DAY
     Route: 055
     Dates: start: 2010, end: 201205
  2. SYMBICORT PMDI [Suspect]
     Indication: CHRONIC OBSTRUCTIVE PULMONARY DISEASE
     Dosage: 160/4.5, 2 PUFFS IN THE MORNING AND 1 PUFF IN THE EVENING
     Route: 055
     Dates: start: 201205
  3. ANASTROZOLE [Concomitant]
     Indication: BREAST CANCER
  4. HCTZ [Concomitant]
  5. CARDILOL [Concomitant]
     Indication: BLOOD PRESSURE ABNORMAL
  6. NASONEX [Concomitant]
     Dosage: AS NEEDED
     Route: 045
  7. AZELASTINE [Concomitant]
  8. SPIRIVA [Concomitant]
     Dosage: DAILY

REACTIONS (5)
  - Rotator cuff syndrome [Unknown]
  - Exostosis [Unknown]
  - Muscle injury [Unknown]
  - Breast cancer [Unknown]
  - Therapeutic response unexpected [Unknown]
